FAERS Safety Report 5063572-2 (Version None)
Quarter: 2006Q3

REPORT INFORMATION
  Report Type: 
  Country: None (occurrence: None)
  Receive Date: 20060727
  Receipt Date: 20060718
  Transmission Date: 20061208
  Serious: Yes (Other)
  Sender: FDA-Public Use
  Company Number: CA-ROCHE-456027

PATIENT
  Age: 23 Year
  Sex: Female

DRUGS (3)
  1. XENICAL [Suspect]
     Indication: WEIGHT CONTROL
     Route: 048
     Dates: start: 20060107, end: 20060601
  2. SYNTHROID [Concomitant]
     Indication: HYPOTHYROIDISM
     Route: 048
     Dates: start: 20020615
  3. ORTHO TRI-CYCLEN [Concomitant]
     Route: 048
     Dates: start: 19960615

REACTIONS (2)
  - CHEST PAIN [None]
  - CHOLECYSTECTOMY [None]
